FAERS Safety Report 23690195 (Version 1)
Quarter: 2024Q2

REPORT INFORMATION
  Report Type: Spontaneous
  Country: CN (occurrence: CN)
  Receive Date: 20240401
  Receipt Date: 20240401
  Transmission Date: 20240716
  Serious: Yes (Life-Threatening)
  Sender: FDA-Public Use
  Company Number: None

PATIENT
  Age: 32 Year
  Sex: Male
  Weight: 74.8 kg

DRUGS (2)
  1. OZEMPIC [Suspect]
     Active Substance: SEMAGLUTIDE
     Indication: Type 2 diabetes mellitus
     Dosage: 0.5 MG, BID
     Route: 058
     Dates: start: 20240306, end: 20240309
  2. ERTUGLIFLOZIN [Concomitant]
     Active Substance: ERTUGLIFLOZIN
     Indication: Type 2 diabetes mellitus
     Dosage: 5 MG, BID
     Route: 048
     Dates: start: 20240306, end: 20240309

REACTIONS (7)
  - Dehydration [Recovering/Resolving]
  - Ketosis [Recovering/Resolving]
  - Headache [Recovering/Resolving]
  - Palpitations [Recovering/Resolving]
  - Blood potassium increased [Recovering/Resolving]
  - Acidosis [Recovering/Resolving]
  - Inappropriate schedule of product administration [Recovered/Resolved]

NARRATIVE: CASE EVENT DATE: 20240306
